FAERS Safety Report 4480433-8 (Version None)
Quarter: 2004Q4

REPORT INFORMATION
  Report Type: 
  Country: None (occurrence: None)
  Receive Date: 20041018
  Receipt Date: 20040930
  Transmission Date: 20050328
  Serious: Yes (Hospitalization)
  Sender: FDA-Public Use
  Company Number: F03200400089

PATIENT
  Age: 32 Year
  Sex: Male

DRUGS (3)
  1. PLAVIX [Suspect]
     Dosage: 75 MG QD - ORAL
     Route: 048
     Dates: start: 20040708, end: 20040714
  2. PLAVIX [Suspect]
     Dosage: 75 MG QD - ORAL
     Route: 048
     Dates: start: 20040725, end: 20040731
  3. SB 424323 CAPSULE - UNKNOWN - 500 MG [Suspect]
     Dosage: 500 MG BID - ORAL
     Route: 048
     Dates: start: 20040708, end: 20040714

REACTIONS (10)
  - APHTHOUS STOMATITIS [None]
  - DIZZINESS POSTURAL [None]
  - DRUG ERUPTION [None]
  - ERYTHEMA [None]
  - LIP SLOUGHING [None]
  - OEDEMA PERIPHERAL [None]
  - PRURITUS [None]
  - SERUM SICKNESS [None]
  - TACHYCARDIA [None]
  - URTICARIA [None]
